FAERS Safety Report 7955606-X (Version None)
Quarter: 2011Q4

REPORT INFORMATION
  Report Type: 
  Country: None (occurrence: None)
  Receive Date: 20111202
  Receipt Date: 20111123
  Transmission Date: 20120403
  Serious: Yes (Other)
  Sender: FDA-Public Use
  Company Number: CN-ASTRAZENECA-2011SE71322

PATIENT
  Sex: Female

DRUGS (2)
  1. PROPOFOL [Suspect]
     Indication: ANAESTHESIA
     Dosage: 1.5-2 MG/KG AT RATE OF 10 MG/S
     Route: 042
  2. FENTANYL [Suspect]
     Indication: ANAESTHESIA
     Dosage: 1 UG/KG AT RATE OF 10 MG/S
     Route: 042

REACTIONS (1)
  - CARDIOVASCULAR INSUFFICIENCY [None]
